FAERS Safety Report 21658208 (Version 1)
Quarter: 2022Q4

REPORT INFORMATION
  Report Type: Spontaneous
  Country: US (occurrence: None)
  Receive Date: 20221128
  Receipt Date: 20221128
  Transmission Date: 20230112
  Serious: Yes (Other)
  Sender: FDA-Public Use
  Company Number: None

PATIENT
  Age: 27 Year
  Sex: Female
  Weight: 58.5 kg

DRUGS (3)
  1. ETONOGESTREL/ETHINYL ESTRADIOL [Suspect]
     Active Substance: ETHINYL ESTRADIOL\ETONOGESTREL
     Indication: Contraception
     Dosage: OTHER STRENGTH : MG PER DAY;?OTHER QUANTITY : 1 RING;?OTHER FREQUENCY : 3 WEEKS;?
     Route: 067
  2. MINOCYCLINE [Concomitant]
     Active Substance: MINOCYCLINE HYDROCHLORIDE
  3. VITAMINS [Concomitant]
     Active Substance: VITAMINS

REACTIONS (4)
  - Vulvovaginal dryness [None]
  - Product substitution issue [None]
  - Sensitive skin [None]
  - Dyspareunia [None]

NARRATIVE: CASE EVENT DATE: 20220901
